FAERS Safety Report 6574562-2 (Version None)
Quarter: 2010Q1

REPORT INFORMATION
  Report Type: 
  Country: None (occurrence: None)
  Receive Date: 20100209
  Receipt Date: 20091030
  Transmission Date: 20100710
  Serious: No
  Sender: FDA-Public Use
  Company Number: A0814214A

PATIENT
  Age: 44 Year
  Sex: Male

DRUGS (5)
  1. PAXIL CR [Suspect]
     Dosage: 37.5MG PER DAY
     Route: 048
     Dates: start: 20060101, end: 20091023
  2. PAXIL CR [Suspect]
     Dosage: 12.5MG UNKNOWN
     Route: 048
  3. XANAX [Concomitant]
  4. CYMBALTA [Concomitant]
  5. TYLENOL-500 [Concomitant]

REACTIONS (4)
  - DIZZINESS [None]
  - HEADACHE [None]
  - PYREXIA [None]
  - WITHDRAWAL SYNDROME [None]
